FAERS Safety Report 5739746-1 (Version None)
Quarter: 2008Q2

REPORT INFORMATION
  Report Type: 
  Country: None (occurrence: None)
  Receive Date: 20080512
  Receipt Date: 20080512
  Transmission Date: 20081010
  Serious: Yes (Other)
  Sender: FDA-Public Use
  Company Number: None

PATIENT
  Sex: Female
  Weight: 113.3993 kg

DRUGS (1)
  1. AMBIEN [Suspect]
     Indication: INSOMNIA
     Dosage: 1 TABLET BEFORE BED TIME NIGHTLY PO ONCE
     Route: 048
     Dates: start: 20040404, end: 20040404

REACTIONS (4)
  - ACTIVITIES OF DAILY LIVING IMPAIRED [None]
  - SYNCOPE [None]
  - VERTIGO [None]
  - VOMITING [None]
